FAERS Safety Report 18283045 (Version 1)
Quarter: 2020Q3

REPORT INFORMATION
  Report Type: Spontaneous
  Country: US (occurrence: US)
  Receive Date: 20200918
  Receipt Date: 20200918
  Transmission Date: 20201103
  Serious: No
  Sender: FDA-Public Use
  Company Number: None

PATIENT
  Age: 38 Year
  Sex: Male
  Weight: 198 kg

DRUGS (2)
  1. FENTANYL INJECTION [Concomitant]
     Active Substance: FENTANYL
     Dates: start: 20200918, end: 20200918
  2. MIDAZOLAM. [Suspect]
     Active Substance: MIDAZOLAM
     Indication: SEDATIVE THERAPY
     Dosage: ?          OTHER FREQUENCY:ONCE;?
     Route: 040
     Dates: start: 20200918, end: 20200918

REACTIONS (2)
  - Product measured potency issue [None]
  - Sedation complication [None]

NARRATIVE: CASE EVENT DATE: 20200918
